FAERS Safety Report 11676363 (Version 1)
Quarter: 2015Q4

REPORT INFORMATION
  Report Type: Spontaneous
  Country: US (occurrence: US)
  Receive Date: 20151027
  Receipt Date: 20151027
  Transmission Date: 20160304
  Serious: No
  Sender: FDA-Public Use
  Company Number: US-ELI_LILLY_AND_COMPANY-US200912004653

PATIENT
  Sex: Female

DRUGS (4)
  1. LEVOTHYROXINE. [Concomitant]
     Active Substance: LEVOTHYROXINE
  2. FORTEO [Suspect]
     Active Substance: TERIPARATIDE
     Dosage: 20 UG, DAILY (1/D)
     Route: 058
     Dates: start: 200912
  3. PREDNISONE. [Concomitant]
     Active Substance: PREDNISONE
  4. FORTEO [Suspect]
     Active Substance: TERIPARATIDE
     Dosage: 20 UG, DAILY (1/D)
     Route: 058

REACTIONS (4)
  - Pyelonephritis [Unknown]
  - Musculoskeletal chest pain [Unknown]
  - Klebsiella infection [Unknown]
  - Blood thyroid stimulating hormone increased [Unknown]
